FAERS Safety Report 14452942 (Version 4)
Quarter: 2018Q2

REPORT INFORMATION
  Report Type: Spontaneous
  Country: JP (occurrence: JP)
  Receive Date: 20180129
  Receipt Date: 20180531
  Transmission Date: 20180711
  Serious: Yes (Disabling)
  Sender: FDA-Public Use
  Company Number: JP-JNJFOC-20180131662

PATIENT
  Age: 82 Year
  Sex: Male
  Weight: 50.2 kg

DRUGS (14)
  1. TRAMADOL HYDROCHLORIDE AND ACETAMINOPHEN [Concomitant]
     Active Substance: ACETAMINOPHEN\TRAMADOL HYDROCHLORIDE
     Route: 065
  2. LIMAPROST ALFADEX [Concomitant]
     Active Substance: LIMAPROST
     Route: 048
  3. CRESTOR [Concomitant]
     Active Substance: ROSUVASTATIN CALCIUM
     Route: 048
     Dates: start: 20170923
  4. EDIROL [Concomitant]
     Active Substance: ELDECALCITOL
     Route: 065
  5. DILAZEP [Concomitant]
     Active Substance: DILAZEP
     Route: 048
     Dates: start: 20170923
  6. BAYASPIRIN [Concomitant]
     Active Substance: ASPIRIN
     Route: 048
  7. LOSARHYD [Concomitant]
     Active Substance: HYDROCHLOROTHIAZIDE\LOSARTAN POTASSIUM
     Route: 048
  8. SARPOGRELATE HYDROCHLORIDE [Concomitant]
     Active Substance: SARPOGRELATE HYDROCHLORIDE
     Route: 048
  9. LANSOPRAZOLE. [Concomitant]
     Active Substance: LANSOPRAZOLE
     Route: 065
  10. SIMPONI [Suspect]
     Active Substance: GOLIMUMAB
     Indication: RHEUMATOID ARTHRITIS
     Route: 058
     Dates: start: 201702
  11. COCARL [Concomitant]
     Active Substance: ACETAMINOPHEN
     Route: 048
     Dates: start: 20171003
  12. CLEANAL [Concomitant]
     Active Substance: FUDOSTEINE
     Route: 048
     Dates: start: 20170923
  13. PREDONINE [Concomitant]
     Active Substance: PREDNISOLONE
     Route: 065
  14. MAGMITT [Concomitant]
     Active Substance: MAGNESIUM OXIDE
     Route: 065

REACTIONS (1)
  - Autoimmune hepatitis [Recovering/Resolving]

NARRATIVE: CASE EVENT DATE: 20170915
